FAERS Safety Report 8777078 (Version 2)
Quarter: 2012Q4

REPORT INFORMATION
  Report Type: 
  Country: GB (occurrence: GB)
  Receive Date: 20120911
  Receipt Date: 20121016
  Transmission Date: 20130627
  Serious: Yes (Other)
  Sender: FDA-Public Use
  Company Number: GB-B.I. PHARMACEUTICALS,INC./RIDGEFIELD-2012-UK-01167UK

PATIENT
  Sex: Male
  Weight: 79.3 kg

DRUGS (8)
  1. MIRAPEXIN [Suspect]
     Indication: PARKINSON^S DISEASE
     Dosage: 1.05 mg
     Route: 048
     Dates: start: 20120515
  2. MIRAPEXIN [Suspect]
     Dosage: 0.52 mg
     Route: 048
  3. MIRAPEXIN [Suspect]
     Dosage: 0.26 mg
     Route: 048
     Dates: end: 20120801
  4. MIRAPEXIN [Suspect]
     Dosage: 0.26 mg
     Route: 048
     Dates: start: 20120807, end: 20120902
  5. MIRAPEXIN [Suspect]
     Dosage: 0.52 mg
     Route: 048
     Dates: start: 20120903
  6. OMEPRAZOLE [Concomitant]
     Indication: PROPHYLAXIS
     Dosage: 20 mg
     Route: 048
     Dates: start: 200809
  7. IBUPROFEN [Concomitant]
     Indication: ANALGESIC THERAPY
     Dosage: 400 mg
     Route: 048
     Dates: start: 200809
  8. CIALIS [Concomitant]
     Indication: ERECTILE DYSFUNCTION
     Dosage: 20 mg
     Route: 048
     Dates: start: 200402

REACTIONS (9)
  - Confusional state [Unknown]
  - Depressed level of consciousness [Unknown]
  - Visual impairment [Unknown]
  - Dizziness [Not Recovered/Not Resolved]
  - Aphasia [Unknown]
  - Incorrect storage of drug [Unknown]
  - Headache [Not Recovered/Not Resolved]
  - Fatigue [Not Recovered/Not Resolved]
  - Somnolence [Not Recovered/Not Resolved]
